APPROVED DRUG PRODUCT: IOPAMIDOL
Active Ingredient: IOPAMIDOL
Strength: 76%
Dosage Form/Route: INJECTABLE;INJECTION
Application: A074734 | Product #002
Applicant: HOSPIRA INC
Approved: Dec 10, 1996 | RLD: No | RS: No | Type: DISCN